FAERS Safety Report 21119014 (Version 7)
Quarter: 2022Q4

REPORT INFORMATION
  Report Type: Report from Study
  Country: US (occurrence: US)
  Receive Date: 20220722
  Receipt Date: 20221025
  Transmission Date: 20230113
  Serious: Yes (Hospitalization, Other)
  Sender: FDA-Public Use
  Company Number: US-NOVARTISTESTPH-NVSC2022US166004

PATIENT
  Age: 30 Year
  Sex: Male

DRUGS (7)
  1. KESIMPTA [Suspect]
     Active Substance: OFATUMUMAB
     Indication: Relapsing-remitting multiple sclerosis
     Dosage: 20 MG, QMO
     Route: 058
  2. KESIMPTA [Suspect]
     Active Substance: OFATUMUMAB
     Indication: Secondary progressive multiple sclerosis
  3. KESIMPTA [Suspect]
     Active Substance: OFATUMUMAB
     Indication: Clinically isolated syndrome
  4. KESIMPTA [Suspect]
     Active Substance: OFATUMUMAB
     Indication: Multiple sclerosis
  5. VITAMIN D [Concomitant]
     Active Substance: VITAMIN D NOS
     Indication: Product used for unknown indication
     Dosage: UNK
     Route: 065
  6. MECLIZINE HYDROCHLORIDE [Concomitant]
     Active Substance: MECLIZINE HYDROCHLORIDE
     Indication: Product used for unknown indication
     Dosage: UNK
     Route: 065
  7. DRAMAMINE [Concomitant]
     Active Substance: DIMENHYDRINATE
     Indication: Product used for unknown indication
     Dosage: UNK
     Route: 065

REACTIONS (16)
  - Multiple sclerosis relapse [Unknown]
  - Hemiparesis [Unknown]
  - Anxiety [Unknown]
  - Feeling abnormal [Unknown]
  - Feeling jittery [Unknown]
  - Tremor [Unknown]
  - Agitation [Unknown]
  - Affective disorder [Unknown]
  - Dysarthria [Unknown]
  - Balance disorder [Unknown]
  - Impatience [Unknown]
  - Accidental exposure to product [Unknown]
  - Vision blurred [Unknown]
  - Arthralgia [Unknown]
  - Slow speech [Unknown]
  - Gait inability [Unknown]

NARRATIVE: CASE EVENT DATE: 20220720
